FAERS Safety Report 4450311-9 (Version None)
Quarter: 2004Q3

REPORT INFORMATION
  Report Type: 
  Country: None (occurrence: None)
  Receive Date: 20040914
  Receipt Date: 20040831
  Transmission Date: 20050211
  Serious: No
  Sender: FDA-Public Use
  Company Number: A02200402626

PATIENT
  Age: 56 Year
  Sex: Female

DRUGS (2)
  1. ELOXATIN [Suspect]
     Indication: BILE DUCT CANCER
     Route: 042
     Dates: start: 20040701, end: 20040701
  2. GEMCITABINE (GEMCITABINE HYDROCHLORIDE) [Concomitant]

REACTIONS (3)
  - BLINDNESS TRANSIENT [None]
  - NEUROTOXICITY [None]
  - RETINAL VEIN THROMBOSIS [None]
